FAERS Safety Report 12530008 (Version 1)
Quarter: 2016Q3

REPORT INFORMATION
  Report Type: Spontaneous
  Country: US (occurrence: US)
  Receive Date: 20160706
  Receipt Date: 20160706
  Transmission Date: 20161109
  Serious: Yes (Death, Hospitalization)
  Sender: FDA-Public Use
  Company Number: US-CIPLA LTD.-2011US00155

PATIENT

DRUGS (14)
  1. DEXAMETHASONE. [Suspect]
     Active Substance: DEXAMETHASONE
     Dosage: 12 MG, UNK
     Route: 065
  2. ALLOPURINOL. [Concomitant]
     Active Substance: ALLOPURINOL
     Dosage: 300 MG, UNK
     Route: 048
  3. PANTOPRAZOLE [Concomitant]
     Active Substance: PANTOPRAZOLE SODIUM
     Dosage: 40 MG, DAILY
     Route: 065
  4. METOPROLOL. [Concomitant]
     Active Substance: METOPROLOL
     Dosage: 12.5 MG, BID
     Route: 065
  5. CARBOPLATIN. [Suspect]
     Active Substance: CARBOPLATIN
     Indication: SMALL CELL LUNG CANCER EXTENSIVE STAGE
     Dosage: 370 MG, ON DAY 1, BASED ON AUC 5
     Route: 065
  6. ONDANSETRON [Suspect]
     Active Substance: ONDANSETRON
     Dosage: 8 MG, BID
     Route: 065
  7. RANITIDINE. [Suspect]
     Active Substance: RANITIDINE
     Dosage: 50 MG, UNK
     Route: 065
  8. OXYCODONE [Concomitant]
     Active Substance: OXYCODONE
     Dosage: 5 MG, PRN
     Route: 065
  9. ONDANSETRON [Suspect]
     Active Substance: ONDANSETRON
     Dosage: 24 MG, UNK
     Route: 042
  10. ASPIRIN. [Concomitant]
     Active Substance: ASPIRIN
     Dosage: 81 MG, DAILY
     Route: 065
  11. DOCUSATE [Concomitant]
     Active Substance: DOCUSATE
     Dosage: 100 MG, DAILY
     Route: 065
  12. ETOPOSIDE. [Suspect]
     Active Substance: ETOPOSIDE
     Indication: SMALL CELL LUNG CANCER EXTENSIVE STAGE
     Dosage: 150 MG, ON DAYS 1-3 BASED ON A BODY SURFACE AREA
     Route: 065
  13. IPRATROPIUM [Concomitant]
     Active Substance: IPRATROPIUM
     Dosage: UNK, TID, NEBULIZED THERAPY
     Route: 065
  14. DIPHENHYDRAMINE. [Suspect]
     Active Substance: DIPHENHYDRAMINE
     Dosage: 25 MG, UNK
     Route: 065

REACTIONS (2)
  - Atrial flutter [Unknown]
  - Death [Fatal]
